FAERS Safety Report 18545865 (Version 1)
Quarter: 2020Q4

REPORT INFORMATION
  Report Type: Spontaneous
  Country: US (occurrence: US)
  Receive Date: 20201125
  Receipt Date: 20201125
  Transmission Date: 20210114
  Serious: No
  Sender: FDA-Public Use
  Company Number: US-BIOGEN-2020BI00950388

PATIENT
  Sex: Female

DRUGS (11)
  1. SERTRALINE [Concomitant]
     Active Substance: SERTRALINE HYDROCHLORIDE
     Route: 065
  2. EPINEPHRINE. [Concomitant]
     Active Substance: EPINEPHRINE
     Route: 065
  3. LIDOCAINE. [Concomitant]
     Active Substance: LIDOCAINE
     Route: 065
  4. OXYCODONE [Concomitant]
     Active Substance: OXYCODONE
     Route: 065
  5. NITROFURANTOIN. [Concomitant]
     Active Substance: NITROFURANTOIN
     Route: 065
  6. TECFIDERA [Suspect]
     Active Substance: DIMETHYL FUMARATE
     Indication: MULTIPLE SCLEROSIS
     Route: 048
     Dates: start: 20190205
  7. ESCITALOPRAM [Concomitant]
     Active Substance: ESCITALOPRAM OXALATE
     Route: 065
  8. METRONIDAZOLE. [Concomitant]
     Active Substance: METRONIDAZOLE
     Route: 065
  9. DICLOFENAC [Concomitant]
     Active Substance: DICLOFENAC
     Route: 065
  10. MYRBETRIQ [Concomitant]
     Active Substance: MIRABEGRON
     Route: 065
  11. ZOLPIDEM [Concomitant]
     Active Substance: ZOLPIDEM TARTRATE
     Route: 065

REACTIONS (1)
  - Fatigue [Not Recovered/Not Resolved]
